FAERS Safety Report 14448798 (Version 1)
Quarter: 2018Q1

REPORT INFORMATION
  Report Type: Report from Study
  Country: US (occurrence: AR)
  Receive Date: 20180126
  Receipt Date: 20180126
  Transmission Date: 20180509
  Serious: Yes (Hospitalization, Other)
  Sender: FDA-Public Use
  Company Number: US-SUNOVION-2018SUN000270

PATIENT
  Age: 63 Year
  Sex: Female

DRUGS (3)
  1. INDACATEROL AND GLYCOPYRROLATE [Suspect]
     Active Substance: GLYCOPYRROLATE\INDACATEROL MALEATE
     Indication: LUNG NEOPLASM MALIGNANT
  2. INDACATEROL AND GLYCOPYRROLATE [Suspect]
     Active Substance: GLYCOPYRROLATE\INDACATEROL MALEATE
     Indication: CHRONIC OBSTRUCTIVE PULMONARY DISEASE
  3. INDACATEROL AND GLYCOPYRROLATE [Suspect]
     Active Substance: GLYCOPYRROLATE\INDACATEROL MALEATE
     Indication: LUNG DISORDER
     Dosage: 1 DF, QD (1 IN THE MORNING) (8 YEARS AGO, APPROX)
     Route: 055
     Dates: end: 201707

REACTIONS (7)
  - Influenza [Unknown]
  - Cardio-respiratory arrest [Unknown]
  - Product use in unapproved indication [Unknown]
  - Pyrexia [Recovered/Resolved]
  - Lung disorder [Unknown]
  - Pharyngitis [Recovered/Resolved]
  - Wrong drug administered [Unknown]

NARRATIVE: CASE EVENT DATE: 201707
